FAERS Safety Report 11508296 (Version 2)
Quarter: 2015Q4

REPORT INFORMATION
  Report Type: Spontaneous
  Country: IT (occurrence: IT)
  Receive Date: 20150915
  Receipt Date: 20151016
  Transmission Date: 20160304
  Serious: Yes (Other)
  Sender: FDA-Public Use
  Company Number: IT-PFIZER INC-2015301280

PATIENT
  Age: 58 Year
  Sex: Male

DRUGS (5)
  1. TAREG [Concomitant]
     Active Substance: VALSARTAN
     Dosage: UNK
     Dates: start: 20150722, end: 20150726
  2. CARDIOASPIRIN [Concomitant]
     Active Substance: ASPIRIN
     Dosage: UNK
  3. TORVAST [Suspect]
     Active Substance: ATORVASTATIN
     Dosage: UNK
     Dates: start: 20150722, end: 20150726
  4. PLAVIX [Concomitant]
     Active Substance: CLOPIDOGREL BISULFATE
     Dosage: UNK
     Dates: start: 20150722, end: 20150726
  5. LANSOX [Concomitant]
     Active Substance: LANSOPRAZOLE
     Dosage: UNK
     Dates: start: 20150722, end: 20150726

REACTIONS (2)
  - Hypersensitivity [Recovering/Resolving]
  - Erythema [Recovering/Resolving]

NARRATIVE: CASE EVENT DATE: 20150726
